FAERS Safety Report 4337641-6 (Version None)
Quarter: 2004Q2

REPORT INFORMATION
  Report Type: 
  Country: None (occurrence: None)
  Receive Date: 20040408
  Receipt Date: 20040330
  Transmission Date: 20050107
  Serious: Yes (Life-Threatening, Hospitalization)
  Sender: FDA-Public Use
  Company Number: 2003AP03335

PATIENT
  Age: 72 Year
  Sex: Female
  Weight: 50 kg

DRUGS (8)
  1. NOLVADEX [Suspect]
     Indication: BREAST CANCER
     Dosage: 20 MG DAILY PO
     Route: 048
     Dates: start: 19981216, end: 20030901
  2. TAKEPRON [Suspect]
     Dosage: 15 MG DAILY PO
     Route: 048
     Dates: end: 20030901
  3. ADALAT [Suspect]
     Dosage: 40 MG DAILY PO
     Route: 048
     Dates: end: 20030901
  4. CEROCRAL [Concomitant]
  5. MYSLEE [Concomitant]
  6. DEPAS [Concomitant]
  7. SALIVEHT [Concomitant]
  8. RADIOTHERAPY [Concomitant]

REACTIONS (5)
  - ACUTE MYELOID LEUKAEMIA [None]
  - CHROMOSOME ABNORMALITY [None]
  - MYELODYSPLASTIC SYNDROME [None]
  - PNEUMONIA [None]
  - SUBDURAL HAEMATOMA [None]
